FAERS Safety Report 17337933 (Version 1)
Quarter: 2020Q1

REPORT INFORMATION
  Report Type: Spontaneous
  Country: US (occurrence: US)
  Receive Date: 20200113
  Receipt Date: 20200113
  Transmission Date: 20200409
  Serious: No
  Sender: FDA-Public Use
  Company Number: None

PATIENT
  Sex: Female

DRUGS (1)
  1. COPAXONE [Suspect]
     Active Substance: GLATIRAMER ACETATE
     Indication: MULTIPLE SCLEROSIS
     Route: 058
     Dates: start: 20180220

REACTIONS (7)
  - Amnesia [None]
  - Anxiety [None]
  - Menstruation delayed [None]
  - Weight increased [None]
  - Hyperhidrosis [None]
  - Injection site irritation [None]
  - Swelling [None]
